FAERS Safety Report 8060449-5 (Version None)
Quarter: 2012Q1

REPORT INFORMATION
  Report Type: 
  Country: None (occurrence: None)
  Receive Date: 20120120
  Receipt Date: 20120110
  Transmission Date: 20120608
  Serious: Yes (Death)
  Sender: FDA-Public Use
  Company Number: JP-GLAXOSMITHKLINE-B0775014A

PATIENT
  Sex: Female
  Weight: 36 kg

DRUGS (7)
  1. CEFAZOLIN SODIUM [Concomitant]
     Route: 048
  2. VALTREX [Suspect]
     Indication: HERPES ZOSTER
     Dosage: 3000MG PER DAY
     Route: 048
     Dates: start: 20120108, end: 20120108
  3. ASPARA K [Concomitant]
     Route: 048
  4. LOXONIN [Concomitant]
     Route: 048
  5. FAMOTIDINE [Concomitant]
     Route: 065
  6. BESACOLIN [Concomitant]
     Route: 048
  7. FUROSEMIDE [Concomitant]
     Dosage: 20MG PER DAY
     Route: 048

REACTIONS (5)
  - PO2 DECREASED [None]
  - FEELING COLD [None]
  - BLOOD PRESSURE DECREASED [None]
  - SHOCK [None]
  - DYSPNOEA [None]
